FAERS Safety Report 6308078-5 (Version None)
Quarter: 2009Q3

REPORT INFORMATION
  Report Type: 
  Country: None (occurrence: None)
  Receive Date: 20090813
  Receipt Date: 20090806
  Transmission Date: 20100115
  Serious: Yes (Hospitalization)
  Sender: FDA-Public Use
  Company Number: B0588473A

PATIENT
  Sex: Female

DRUGS (1)
  1. LAMICTAL [Suspect]
     Indication: EPILEPSY
     Dosage: 1G PER DAY
     Route: 048
     Dates: start: 20090323

REACTIONS (4)
  - DIPLOPIA [None]
  - DIZZINESS [None]
  - FATIGUE [None]
  - NAUSEA [None]
